FAERS Safety Report 26191868 (Version 1)
Quarter: 2025Q4

REPORT INFORMATION
  Report Type: Spontaneous
  Country: US (occurrence: None)
  Receive Date: 20251222
  Receipt Date: 20251222
  Transmission Date: 20260119
  Serious: Yes (Life-Threatening, Other)
  Sender: FDA-CTU
  Company Number: None

PATIENT
  Age: 66 Year
  Sex: Female
  Weight: 100 kg

DRUGS (3)
  1. PHYTONADIONE [Suspect]
     Active Substance: PHYTONADIONE
     Dosage: FREQUENCY : ONCE;
     Route: 042
  2. PHYTONADIONE [Suspect]
     Active Substance: PHYTONADIONE
  3. VITAMIN K [Concomitant]
     Active Substance: PHYTONADIONE

REACTIONS (3)
  - Oxygen saturation decreased [None]
  - Infusion related reaction [None]
  - Dyspnoea [None]

NARRATIVE: CASE EVENT DATE: 20251217
